FAERS Safety Report 9620659 (Version 1)
Quarter: 2013Q4

REPORT INFORMATION
  Report Type: Spontaneous
  Country: US (occurrence: US)
  Receive Date: 20131015
  Receipt Date: 20131015
  Transmission Date: 20140711
  Serious: Yes (Other)
  Sender: FDA-Public Use
  Company Number: US-AMGEN-USASP2013071574

PATIENT
  Age: 61 Year
  Sex: Female
  Weight: 77.1 kg

DRUGS (13)
  1. ENBREL [Suspect]
     Indication: PRODUCT USED FOR UNKNOWN INDICATION
     Dosage: 50 MG, QWK
     Route: 058
  2. NORVASC [Concomitant]
     Dosage: 2.5 MG, UNK
  3. METOPROLOL [Concomitant]
     Dosage: 50 MG, UNK
  4. ERYTHROMYCIN [Concomitant]
     Dosage: 250 MG, UNK
  5. PRILOSEC                           /00661201/ [Concomitant]
     Dosage: 20 MG, UNK
  6. FOLIC ACID [Concomitant]
     Dosage: 1 MG, UNK
  7. METHOTREXATE [Concomitant]
     Dosage: 2.5 MG, UNK
  8. LASIX                              /00032601/ [Concomitant]
     Dosage: 40 MG, UNK
  9. RAMIPRIL [Concomitant]
     Dosage: 2.5 MG, UNK
  10. SIMVASTATIN [Concomitant]
     Dosage: 40 MG, UNK
  11. POTASSIUM [Concomitant]
     Dosage: 75 MG, UNK
  12. AMBIEN [Concomitant]
     Dosage: 5 MG, UNK
  13. VITAMIN D3 [Concomitant]
     Dosage: 5000 UNIT, UNK

REACTIONS (3)
  - Pneumonia [Unknown]
  - Obstructive airways disorder [Unknown]
  - Rotator cuff repair [Unknown]
